FAERS Safety Report 10005201 (Version 2)
Quarter: 2019Q4

REPORT INFORMATION
  Report Type: Spontaneous
  Country: US (occurrence: US)
  Receive Date: 20140312
  Receipt Date: 20191031
  Transmission Date: 20200122
  Serious: Yes (Other)
  Sender: FDA-Public Use
  Company Number: US-PFIZER INC-2014066690

PATIENT
  Age: 55 Year
  Sex: Female
  Weight: 63.49 kg

DRUGS (1)
  1. LIPITOR [Suspect]
     Active Substance: ATORVASTATIN CALCIUM
     Indication: BLOOD CHOLESTEROL INCREASED
     Dosage: 10 MG, DAILY
     Dates: start: 20020212

REACTIONS (2)
  - Type 2 diabetes mellitus [Unknown]
  - Weight increased [Unknown]

NARRATIVE: CASE EVENT DATE: 20020618
